FAERS Safety Report 10198492 (Version 1)
Quarter: 2014Q2

REPORT INFORMATION
  Report Type: Spontaneous
  Country: US (occurrence: None)
  Receive Date: 20140523
  Receipt Date: 20140523
  Transmission Date: 20141212
  Serious: Yes (Other)
  Sender: FDA-Public Use
  Company Number: None

PATIENT
  Age: 56 Year
  Sex: Female
  Weight: 1.68 kg

DRUGS (1)
  1. GLIPIZIDE E.R. [Suspect]
     Indication: DIABETES MELLITUS
     Dosage: 1 PILL; 1 EVERY MORNING
     Route: 048
     Dates: start: 201404

REACTIONS (4)
  - Blood glucose abnormal [None]
  - Product formulation issue [None]
  - Product substitution issue [None]
  - Product quality issue [None]
